FAERS Safety Report 18174266 (Version 1)
Quarter: 2020Q3

REPORT INFORMATION
  Report Type: Other
  Country: CN (occurrence: CN)
  Receive Date: 20200820
  Receipt Date: 20200820
  Transmission Date: 20201103
  Serious: Yes (Death, Hospitalization, Other)
  Sender: FDA-Public Use
  Company Number: CN-ROCHE-2658589

PATIENT

DRUGS (4)
  1. CYCLOSPORINE. [Suspect]
     Active Substance: CYCLOSPORINE
     Indication: GLOMERULONEPHRITIS
     Dosage: 3?4 MG/DAY
     Route: 065
  2. CYCLOPHOSPHAMIDE. [Suspect]
     Active Substance: CYCLOPHOSPHAMIDE
     Indication: GLOMERULONEPHRITIS
     Route: 065
  3. MYCOPHENOLATE MOFETIL. [Suspect]
     Active Substance: MYCOPHENOLATE MOFETIL
     Indication: GLOMERULONEPHRITIS
     Dosage: 1.5G/D
     Route: 065
  4. PREDNISONE. [Suspect]
     Active Substance: PREDNISONE
     Indication: GLOMERULONEPHRITIS
     Route: 065

REACTIONS (15)
  - Acute respiratory failure [Unknown]
  - Enterovirus infection [Fatal]
  - Cytomegalovirus infection [Unknown]
  - Off label use [Unknown]
  - Staphylococcal infection [Unknown]
  - Aspergillus infection [Unknown]
  - Bronchopulmonary aspergillosis [Fatal]
  - Pseudomonas infection [Unknown]
  - Intentional product use issue [Unknown]
  - Respiratory moniliasis [Fatal]
  - Coxsackie viral infection [Unknown]
  - Pneumonia [Fatal]
  - Acute respiratory distress syndrome [Unknown]
  - Pulmonary mycosis [Unknown]
  - Cryptococcosis [Unknown]
